FAERS Safety Report 11761783 (Version 1)
Quarter: 2015Q4

REPORT INFORMATION
  Report Type: Spontaneous
  Country: US (occurrence: US)
  Receive Date: 20151120
  Receipt Date: 20151120
  Transmission Date: 20160304
  Serious: No
  Sender: FDA-Public Use
  Company Number: US-ELI_LILLY_AND_COMPANY-US201210002219

PATIENT
  Age: 73 Year
  Sex: Female
  Weight: 50.79 kg

DRUGS (6)
  1. FORTEO [Suspect]
     Active Substance: TERIPARATIDE
     Indication: OSTEOPOROSIS
     Dosage: 20 UG, QD
     Dates: start: 20120911
  2. FORTEO [Interacting]
     Active Substance: TERIPARATIDE
     Dosage: 20 UG, QD
     Dates: start: 20121204, end: 20121221
  3. FORTEO [Interacting]
     Active Substance: TERIPARATIDE
     Dosage: 20 UG, QD
     Dates: start: 20121110
  4. LISINOPRIL. [Concomitant]
     Active Substance: LISINOPRIL
     Dosage: UNK, UNKNOWN
  5. VICODIN [Concomitant]
     Active Substance: ACETAMINOPHEN\HYDROCODONE BITARTRATE
     Indication: PAIN
     Dosage: UNK
     Dates: end: 201209
  6. SIMVASTATIN. [Interacting]
     Active Substance: SIMVASTATIN
     Dosage: UNK, UNKNOWN

REACTIONS (35)
  - Abdominal discomfort [Unknown]
  - Potentiating drug interaction [Recovered/Resolved]
  - Eyelid oedema [Recovered/Resolved]
  - Palpitations [Recovered/Resolved]
  - Parkinsonism [Recovered/Resolved]
  - Amnesia [Unknown]
  - Injection site mass [Unknown]
  - Heart rate abnormal [Recovered/Resolved]
  - Fluid retention [Recovered/Resolved]
  - Tremor [Recovered/Resolved]
  - Asthenia [Recovered/Resolved]
  - Waist circumference increased [Recovered/Resolved]
  - Pollakiuria [Unknown]
  - Weight decreased [Unknown]
  - Somnolence [Recovered/Resolved]
  - Expired product administered [Unknown]
  - Arthralgia [Recovered/Resolved]
  - Muscular weakness [Recovered/Resolved]
  - Fatigue [Recovered/Resolved]
  - Memory impairment [Recovered/Resolved]
  - Hypothyroidism [Recovered/Resolved]
  - Dizziness [Recovered/Resolved]
  - Nausea [Recovered/Resolved]
  - Balance disorder [Recovered/Resolved]
  - Injection site haemorrhage [Unknown]
  - Joint swelling [Recovered/Resolved]
  - Heart rate decreased [Recovered/Resolved]
  - Cataract [Unknown]
  - Injection site bruising [Unknown]
  - Constipation [Not Recovered/Not Resolved]
  - Pain [Recovered/Resolved]
  - Musculoskeletal chest pain [Unknown]
  - Confusional state [Recovered/Resolved]
  - Peripheral swelling [Recovered/Resolved]
  - Diarrhoea [Recovered/Resolved]

NARRATIVE: CASE EVENT DATE: 201209
